FAERS Safety Report 6237889 (Version 5)
Quarter: 2018Q3

REPORT INFORMATION
  Report Type: Spontaneous
  Country: US (occurrence: US)
  Receive Date: 20070214
  Receipt Date: 20180918
  Transmission Date: 20181010
  Serious: Yes (Hospitalization, Other)
  Sender: FDA-Public Use
  Company Number: US-ELI_LILLY_AND_COMPANY-US200702000776

PATIENT
  Age: 60 Year
  Sex: Female

DRUGS (4)
  1. BYETTA [Concomitant]
     Active Substance: EXENATIDE
     Indication: PRODUCT USED FOR UNKNOWN INDICATION
  2. FORTEO [Suspect]
     Active Substance: TERIPARATIDE
     Dosage: UNK UNK, UNKNOWN
     Route: 065
     Dates: start: 20070119, end: 2010
  3. FORTEO [Suspect]
     Active Substance: TERIPARATIDE
     Indication: BONE DISORDER
     Dosage: UNK UNK, UNKNOWN
     Route: 065
     Dates: start: 200304, end: 200504
  4. FORTEO [Suspect]
     Active Substance: TERIPARATIDE
     Dosage: UNK UNK, UNKNOWN
     Route: 065
     Dates: start: 201805

REACTIONS (9)
  - Device loosening [Unknown]
  - Foot fracture [Unknown]
  - Mass [Unknown]
  - Stress fracture [Recovered/Resolved]
  - Cyst [Unknown]
  - Limb injury [Recovering/Resolving]
  - Femur fracture [Recovering/Resolving]
  - Fall [Recovering/Resolving]
  - Device breakage [Unknown]

NARRATIVE: CASE EVENT DATE: 2006
